FAERS Safety Report 11404151 (Version 1)
Quarter: 2015Q3

REPORT INFORMATION
  Report Type: Spontaneous
  Country: US (occurrence: US)
  Receive Date: 20150821
  Receipt Date: 20150821
  Transmission Date: 20151125
  Serious: No
  Sender: FDA-Public Use
  Company Number: US-SUN PHARMACEUTICAL INDUSTRIES LTD-2014SUN01634

PATIENT

DRUGS (4)
  1. TASIGNA [Concomitant]
     Active Substance: NILOTINIB
     Indication: LEUKAEMIA
     Dosage: UNK
     Route: 065
     Dates: start: 2013
  2. BACTRIM DS [Suspect]
     Active Substance: SULFAMETHOXAZOLE\TRIMETHOPRIM
     Indication: CYSTITIS
     Dosage: ONE TABLET,TWICE A DAY
     Route: 048
     Dates: start: 20140425
  3. BACTRIM DS [Suspect]
     Active Substance: SULFAMETHOXAZOLE\TRIMETHOPRIM
     Indication: URINARY TRACT INFECTION
  4. CIPRO [Concomitant]
     Active Substance: CIPROFLOXACIN HYDROCHLORIDE
     Indication: URINARY TRACT INFECTION
     Route: 065

REACTIONS (3)
  - Drug ineffective [Unknown]
  - Oropharyngeal pain [Unknown]
  - Glossodynia [Unknown]

NARRATIVE: CASE EVENT DATE: 201404
